FAERS Safety Report 9745208 (Version 2)
Quarter: 2014Q1

REPORT INFORMATION
  Report Type: Spontaneous
  Country: US (occurrence: US)
  Receive Date: 20131211
  Receipt Date: 20140115
  Transmission Date: 20141002
  Serious: No
  Sender: FDA-Public Use
  Company Number: US-PFIZER INC-2013351160

PATIENT
  Age: 62 Year
  Sex: Female
  Weight: 82 kg

DRUGS (4)
  1. NORVASC [Suspect]
     Indication: HYPERTENSION
     Dosage: 5 MG, 1X/DAY
     Route: 048
  2. AMLODIPINE BESILATE [Suspect]
     Indication: HYPERTENSION
     Dosage: 5 MG, 1X/DAY
     Route: 048
  3. DIAZEPAM [Concomitant]
     Indication: IRRITABLE BOWEL SYNDROME
     Dosage: 5 MG, UNK
  4. PREMARIN VAGINAL CREAM [Concomitant]
     Indication: VULVOVAGINAL DRYNESS
     Dosage: 1.250 MG (DOSE WAS 2GM, STRENGTH OF THE CREAM WAS 0.625MG PER GM) ,TWO TO THREE TIMES A WEEK
     Route: 067

REACTIONS (3)
  - Vitamin B12 decreased [Unknown]
  - Blood triglycerides increased [Unknown]
  - Blood cholesterol increased [Unknown]
